FAERS Safety Report 12509720 (Version 1)
Quarter: 2016Q2

REPORT INFORMATION
  Report Type: Spontaneous
  Country: US (occurrence: US)
  Receive Date: 20160629
  Receipt Date: 20160629
  Transmission Date: 20160815
  Serious: No
  Sender: FDA-Public Use
  Company Number: US-PERRIGO-15US007337

PATIENT
  Sex: Female

DRUGS (1)
  1. RANITIDINE HYDROCHLORIDE. [Suspect]
     Active Substance: RANITIDINE HYDROCHLORIDE
     Indication: DYSPEPSIA
     Dosage: 300 MG, SINGLE
     Route: 048
     Dates: start: 20150714, end: 20150714

REACTIONS (5)
  - Chest pain [Unknown]
  - Vomiting [Unknown]
  - Incorrect dose administered [Recovered/Resolved]
  - Throat irritation [Unknown]
  - Malaise [Unknown]

NARRATIVE: CASE EVENT DATE: 20150714
